FAERS Safety Report 18051670 (Version 2)
Quarter: 2020Q3

REPORT INFORMATION
  Report Type: Spontaneous
  Country: PH (occurrence: PH)
  Receive Date: 20200722
  Receipt Date: 20200818
  Transmission Date: 20201103
  Serious: Yes (Death, Other)
  Sender: FDA-Public Use
  Company Number: PH-ROCHE-2645957

PATIENT
  Age: 66 Year
  Sex: Male
  Weight: 70 kg

DRUGS (1)
  1. ACTILYSE [Suspect]
     Active Substance: ALTEPLASE
     Indication: ISCHAEMIC STROKE
     Dosage: 0.9 MG/KG
     Route: 065
     Dates: start: 20160416

REACTIONS (6)
  - Arrhythmia [Fatal]
  - Acute coronary syndrome [Fatal]
  - Cardiac arrest [Unknown]
  - Myocardial ischaemia [Unknown]
  - Infusion related reaction [Unknown]
  - Troponin I [Unknown]

NARRATIVE: CASE EVENT DATE: 20160416
